FAERS Safety Report 19456604 (Version 1)
Quarter: 2021Q2

REPORT INFORMATION
  Report Type: Spontaneous
  Country: US (occurrence: US)
  Receive Date: 20210624
  Receipt Date: 20210624
  Transmission Date: 20210717
  Serious: No
  Sender: FDA-Public Use
  Company Number: US-AUROBINDO-AUR-APL-2020-048193

PATIENT
  Age: 67 Year
  Sex: Male
  Weight: 122.47 kg

DRUGS (1)
  1. ZOLPIDEM TARTRATE TABLETS 10 MG [Suspect]
     Active Substance: ZOLPIDEM TARTRATE
     Indication: INSOMNIA
     Dosage: 1 DOSAGE FORM, AS NEEDED
     Route: 048
     Dates: start: 202008, end: 20200911

REACTIONS (4)
  - Drug ineffective [Unknown]
  - Product substitution issue [Unknown]
  - Prescription drug used without a prescription [Unknown]
  - Product label counterfeit [Unknown]
